FAERS Safety Report 14726986 (Version 1)
Quarter: 2018Q2

REPORT INFORMATION
  Report Type: Spontaneous
  Country: US (occurrence: US)
  Receive Date: 20180406
  Receipt Date: 20180406
  Transmission Date: 20180711
  Serious: Yes (Other)
  Sender: FDA-Public Use
  Company Number: US-CURIUM PHARMACEUTICALS-201800104

PATIENT
  Age: 42 Year
  Sex: Female

DRUGS (1)
  1. SODIUM IODIDE I 123 CAPSULES [Suspect]
     Active Substance: SODIUM IODIDE I-123
     Indication: SCAN THYROID GLAND
     Route: 048
     Dates: start: 20180322, end: 20180322

REACTIONS (5)
  - Dyspnoea [Recovered/Resolved]
  - Erythema [Recovering/Resolving]
  - Swelling [Recovering/Resolving]
  - Pruritus generalised [Recovered/Resolved]
  - Urticaria [Recovering/Resolving]

NARRATIVE: CASE EVENT DATE: 20180322
